FAERS Safety Report 13336897 (Version 5)
Quarter: 2021Q2

REPORT INFORMATION
  Report Type: Spontaneous
  Country: US (occurrence: US)
  Receive Date: 20170315
  Receipt Date: 20210413
  Transmission Date: 20210716
  Serious: No
  Sender: FDA-Public Use
  Company Number: US-PFIZER INC-2017107058

PATIENT
  Age: 84 Year
  Sex: Female
  Weight: 53 kg

DRUGS (4)
  1. IBRANCE [Suspect]
     Active Substance: PALBOCICLIB
     Dosage: 125 MG, CYCLIC (D1?21 Q28 DAYS)
     Route: 048
     Dates: start: 20170222
  2. IBRANCE [Suspect]
     Active Substance: PALBOCICLIB
     Dosage: 125 MG
     Dates: start: 2018
  3. IBRANCE [Suspect]
     Active Substance: PALBOCICLIB
     Indication: BREAST CANCER METASTATIC
     Dosage: 125 MG, CYCLIC (DAY 1?21, EVERY 28 DAYS)
     Route: 048
     Dates: start: 20170222
  4. IBRANCE [Suspect]
     Active Substance: PALBOCICLIB
     Dosage: 125 MG, CYCLIC (DAY 1?21, EVERY 28 DAYS)
     Route: 048
     Dates: start: 20170222

REACTIONS (9)
  - Fatigue [Not Recovered/Not Resolved]
  - Lethargy [Unknown]
  - Product packaging quantity issue [Unknown]
  - Nasal dryness [Unknown]
  - Amnesia [Unknown]
  - Epistaxis [Recovering/Resolving]
  - Nasal inflammation [Unknown]
  - Anaemia [Unknown]
  - Circumstance or information capable of leading to medication error [Unknown]
